FAERS Safety Report 17644370 (Version 1)
Quarter: 2020Q2

REPORT INFORMATION
  Report Type: Spontaneous
  Country: US (occurrence: US)
  Receive Date: 20200408
  Receipt Date: 20200408
  Transmission Date: 20200713
  Serious: No
  Sender: FDA-Public Use
  Company Number: US-PFIZER INC-2020142306

PATIENT
  Age: 77 Year
  Sex: Female

DRUGS (1)
  1. EUCRISA [Suspect]
     Active Substance: CRISABOROLE
     Indication: DERMATITIS ALLERGIC
     Dosage: APPLY TO AFFECTED AREA(S) TWICE DAILY

REACTIONS (4)
  - Product use in unapproved indication [Unknown]
  - Rash macular [Unknown]
  - Therapeutic product effect incomplete [Unknown]
  - Off label use [Unknown]
